FAERS Safety Report 5279050-1 (Version None)
Quarter: 2007Q1

REPORT INFORMATION
  Report Type: 
  Country: None (occurrence: None)
  Receive Date: 20070328
  Receipt Date: 20060907
  Transmission Date: 20070707
  Serious: No
  Sender: FDA-Public Use
  Company Number: US-AMGEN-KDL192781

PATIENT
  Sex: Female

DRUGS (1)
  1. NEULASTA [Suspect]
     Indication: CHEMOTHERAPY
     Route: 058

REACTIONS (5)
  - ERYTHEMA [None]
  - PAIN [None]
  - RASH [None]
  - SKIN EXFOLIATION [None]
  - SKIN TIGHTNESS [None]
